FAERS Safety Report 7264112-X (Version None)
Quarter: 2011Q1

REPORT INFORMATION
  Report Type: 
  Country: None (occurrence: None)
  Receive Date: 20110130
  Receipt Date: 20110121
  Transmission Date: 20110831
  Serious: Yes (Hospitalization)
  Sender: FDA-Public Use
  Company Number: DE-BRISTOL-MYERS SQUIBB COMPANY-15502545

PATIENT
  Age: 59 Year
  Sex: Female
  Weight: 60 kg

DRUGS (3)
  1. TRUVADA [Suspect]
     Indication: HIV INFECTION
     Dosage: 1DF=EMTRICITABINE 200MG + TENOFOVIR 245MG,TAB
  2. REYATAZ [Suspect]
     Indication: HIV INFECTION
     Dosage: TABLET
  3. NORVIR [Suspect]
     Indication: HIV INFECTION
     Dosage: TABLET

REACTIONS (3)
  - RENAL FAILURE ACUTE [None]
  - MYCOBACTERIUM AVIUM COMPLEX INFECTION [None]
  - LYMPHOMA [None]
